FAERS Safety Report 6706972-4 (Version None)
Quarter: 2010Q2

REPORT INFORMATION
  Report Type: 
  Country: None (occurrence: None)
  Receive Date: 20100503
  Receipt Date: 20100423
  Transmission Date: 20101027
  Serious: Yes (Hospitalization)
  Sender: FDA-Public Use
  Company Number: GXKR2010US04640

PATIENT
  Age: 58 Year
  Sex: Female

DRUGS (1)
  1. ALENDRONIC ACID (NGX) [Suspect]
     Indication: OSTEOPOROSIS
     Dosage: UNK

REACTIONS (4)
  - ARTHRALGIA [None]
  - FEMUR FRACTURE [None]
  - HIP SURGERY [None]
  - JOINT STIFFNESS [None]
